FAERS Safety Report 11110045 (Version 1)
Quarter: 2015Q2

REPORT INFORMATION
  Report Type: Spontaneous
  Country: SE (occurrence: SE)
  Receive Date: 20150513
  Receipt Date: 20150513
  Transmission Date: 20150821
  Serious: Yes (Death, Other)
  Sender: FDA-Public Use
  Company Number: PHHY2015SE056214

PATIENT
  Age: 23 Year
  Sex: Male

DRUGS (2)
  1. SOM230 [Suspect]
     Active Substance: PASIREOTIDE
     Indication: PROLACTINOMA
     Route: 065
  2. TEMOZOLOMIDE. [Suspect]
     Active Substance: TEMOZOLOMIDE
     Indication: PROLACTINOMA
     Route: 065

REACTIONS (5)
  - Death [Fatal]
  - Prolactinoma [Unknown]
  - Product use issue [Unknown]
  - Neoplasm progression [Unknown]
  - Drug ineffective [Unknown]
